FAERS Safety Report 8617267 (Version 4)
Quarter: 2012Q4

REPORT INFORMATION
  Report Type: 
  Country: US (occurrence: US)
  Receive Date: 20120615
  Receipt Date: 20120911
  Transmission Date: 20130627
  Serious: Yes (Other)
  Sender: FDA-Public Use
  Company Number: US-PFIZER INC-2012140974

PATIENT
  Age: 26 Year
  Sex: Female
  Weight: 145.13 kg

DRUGS (3)
  1. LYRICA [Suspect]
     Indication: FIBROMYALGIA
     Dosage: 75 mg, 2x/day
     Route: 048
     Dates: start: 2000
  2. LYRICA [Suspect]
     Indication: ARTHRALGIA
     Dosage: 150 mg, 2x/day (Take 1 Capsule Twice Daily)
     Route: 048
  3. LEVOTHYROXINE SODIUM [Suspect]
     Indication: HYPOTHYROIDISM
     Dosage: 50 ug, daily

REACTIONS (7)
  - Uterine leiomyoma [Unknown]
  - Ovarian cyst [Unknown]
  - Neoplasm [Unknown]
  - Endometriosis [Unknown]
  - Adhesion [Unknown]
  - Thyroid disorder [Unknown]
  - Weight increased [Unknown]
